APPROVED DRUG PRODUCT: PREDNISONE
Active Ingredient: PREDNISONE
Strength: 2.5MG
Dosage Form/Route: TABLET;ORAL
Application: A040538 | Product #001
Applicant: HIKMA PHARMACEUTICALS LLC
Approved: Jan 8, 2004 | RLD: No | RS: No | Type: DISCN